FAERS Safety Report 19836356 (Version 1)
Quarter: 2021Q3

REPORT INFORMATION
  Report Type: Spontaneous
  Country: US (occurrence: US)
  Receive Date: 20210915
  Receipt Date: 20210915
  Transmission Date: 20211014
  Serious: No
  Sender: FDA-Public Use
  Company Number: US-BIOHAVEN PHARMACEUTICALS-2021BHV00920

PATIENT
  Age: 76 Year
  Sex: Female
  Weight: 63.49 kg

DRUGS (5)
  1. NURTEC ODT [Suspect]
     Active Substance: RIMEGEPANT SULFATE
     Dosage: 75 MG, EVERY 48 HOURS  (EVERY OTHER DAY)
     Route: 048
     Dates: start: 2021, end: 20210722
  2. NURTEC ODT [Suspect]
     Active Substance: RIMEGEPANT SULFATE
     Dosage: 75 MG, EVERY 48 HOURS  (EVERY OTHER DAY)
     Route: 048
     Dates: start: 2021
  3. PROZAC [Concomitant]
     Active Substance: FLUOXETINE HYDROCHLORIDE
  4. UNSPECIFIED MUSCLE RELAXER [Concomitant]
     Active Substance: UNSPECIFIED INGREDIENT
     Dosage: ^SOMETIMES^
  5. NURTEC ODT [Suspect]
     Active Substance: RIMEGEPANT SULFATE
     Indication: MIGRAINE PROPHYLAXIS
     Dosage: UNK
     Route: 048
     Dates: start: 2020, end: 2021

REACTIONS (6)
  - Gait disturbance [Recovered/Resolved]
  - Sinus disorder [Recovered/Resolved]
  - Inner ear disorder [Recovered/Resolved]
  - Fall [Recovered/Resolved]
  - Balance disorder [Recovered/Resolved]
  - Dizziness [Recovered/Resolved]

NARRATIVE: CASE EVENT DATE: 20210722
